FAERS Safety Report 11066318 (Version 2)
Quarter: 2015Q2

REPORT INFORMATION
  Report Type: Spontaneous
  Country: US (occurrence: US)
  Receive Date: 20150425
  Receipt Date: 20150525
  Transmission Date: 20150821
  Serious: Yes (Hospitalization)
  Sender: FDA-Public Use
  Company Number: US-JNJFOC-20140305834

PATIENT
  Age: 77 Year
  Sex: Male

DRUGS (1)
  1. REMICADE [Suspect]
     Active Substance: INFLIXIMAB
     Indication: PLASMA CELL MYELOMA
     Route: 042
     Dates: start: 201309, end: 201310

REACTIONS (2)
  - Demyelinating polyneuropathy [Unknown]
  - Product use issue [Unknown]

NARRATIVE: CASE EVENT DATE: 201309
